FAERS Safety Report 8233785-7 (Version None)
Quarter: 2012Q1

REPORT INFORMATION
  Report Type: 
  Country: None (occurrence: None)
  Receive Date: 20120326
  Receipt Date: 20120312
  Transmission Date: 20120608
  Serious: Yes (Other)
  Sender: FDA-Public Use
  Company Number: ES-MYLANLABS-2012S1005789

PATIENT
  Age: 49 Year
  Sex: Male
  Weight: 84 kg

DRUGS (9)
  1. DIPYRONE INJ [Concomitant]
     Indication: ANALGESIC THERAPY
     Dosage: 2G
     Route: 042
  2. MORPHINE [Suspect]
     Indication: MUSCULOSKELETAL PAIN
     Dosage: ACCIDENTALLY RECEIVED MORPHINE 1 MG/ML, APPROX. 100ML
     Route: 008
  3. BUPIVACAINE HCL [Concomitant]
     Indication: ANAESTHESIA
     Dosage: INITIAL BOLUS OF 8ML OF BUPIVACAINE 0.25% PLUS FENTANYL
  4. FENTANYL [Concomitant]
     Indication: PAIN
     Dosage: BUPIVACAINE PLUS FENTANYL 3 MICROG/ML, 8 ML/H WITH 4ML BOLUS EVERY 60MIN MAXIMUM
     Route: 008
  5. DEXKETOPROFEN [Concomitant]
     Indication: PAIN
     Dosage: 50MG/8H
     Route: 042
  6. BUPIVACAINE HCL [Concomitant]
     Indication: PAIN
     Dosage: BUPIVACAINE 0.1% PLUS FENTANYL, 8 ML/H WITH 4ML BOLUS EVERY 60MIN MAXIMUM
     Route: 008
  7. BUPIVACAINE HCL [Concomitant]
     Dosage: 8ML OF BUPIVACAINE 0.125% PLUS FENTANYL
  8. FENTANYL [Concomitant]
     Indication: ANAESTHESIA
     Dosage: FENTANYL 5 MICROG/ML PLUS BUPIVACAINE; TWO DOSES GIVEN 120 MINS APART
  9. ACETAMINOPHEN [Concomitant]
     Indication: PAIN
     Dosage: 1G/6H
     Route: 042

REACTIONS (3)
  - RESPIRATORY DEPRESSION [None]
  - ACCIDENTAL OVERDOSE [None]
  - INCORRECT ROUTE OF DRUG ADMINISTRATION [None]
